FAERS Safety Report 18665099 (Version 1)
Quarter: 2020Q4

REPORT INFORMATION
  Report Type: Spontaneous
  Country: US (occurrence: US)
  Receive Date: 20201225
  Receipt Date: 20201225
  Transmission Date: 20210114
  Serious: Yes (Hospitalization, Other)
  Sender: FDA-Public Use
  Company Number: US-HIKMA PHARMACEUTICALS USA INC.-US-H14001-20-05768

PATIENT
  Age: 54 Year
  Sex: Male

DRUGS (1)
  1. HEPARIN [Suspect]
     Active Substance: HEPARIN SODIUM
     Indication: VISCERAL VENOUS THROMBOSIS
     Dosage: UNKNOWN
     Route: 042

REACTIONS (4)
  - Platelet count decreased [Recovering/Resolving]
  - Ear pain [Unknown]
  - Pulmonary embolism [Unknown]
  - Headache [Unknown]
